FAERS Safety Report 4347700-X (Version None)
Quarter: 2004Q1

REPORT INFORMATION
  Report Type: 
  Country: None (occurrence: None)
  Receive Date: 20040325
  Receipt Date: 20031211
  Transmission Date: 20041129
  Serious: Yes (Other)
  Sender: FDA-Public Use
  Company Number: USA031254543

PATIENT
  Age: 74 Year
  Sex: Female

DRUGS (12)
  1. FORTEO [Suspect]
     Indication: OSTEOPOROSIS
     Dates: start: 20031210
  2. ZOCOR [Concomitant]
  3. IMURAN [Concomitant]
  4. PRILOSEC [Concomitant]
  5. VASOTEC [Concomitant]
  6. OGEN [Concomitant]
  7. ALLEGRA [Concomitant]
  8. POTASSIUM [Concomitant]
  9. CALCIUM [Concomitant]
  10. VITAMIN E [Concomitant]
  11. CRANBERRY [Concomitant]
  12. OCUVITE [Concomitant]

REACTIONS (4)
  - ARTHRALGIA [None]
  - MUSCULOSKELETAL STIFFNESS [None]
  - NAUSEA [None]
  - SYNCOPE [None]
